FAERS Safety Report 13963408 (Version 1)
Quarter: 2017Q3

REPORT INFORMATION
  Report Type: Spontaneous
  Country: US (occurrence: US)
  Receive Date: 20170913
  Receipt Date: 20170913
  Transmission Date: 20171128
  Serious: No
  Sender: FDA-Public Use
  Company Number: None

PATIENT
  Age: 48 Year
  Sex: Female
  Weight: 78.75 kg

DRUGS (2)
  1. VITAMIN D [Concomitant]
     Active Substance: CHOLECALCIFEROL
  2. METFORMIN HCL [Suspect]
     Active Substance: METFORMIN HYDROCHLORIDE
     Indication: INSULIN RESISTANCE
     Dosage: ?          QUANTITY:100 TABLET(S);?
     Route: 048

REACTIONS (4)
  - Weight increased [None]
  - Swelling [None]
  - Amenorrhoea [None]
  - Product substitution issue [None]

NARRATIVE: CASE EVENT DATE: 20170830
